FAERS Safety Report 18737064 (Version 2)
Quarter: 2021Q1

REPORT INFORMATION
  Report Type: Spontaneous
  Country: NL (occurrence: NL)
  Receive Date: 20210113
  Receipt Date: 20210119
  Transmission Date: 20210419
  Serious: Yes (Other)
  Sender: FDA-Public Use
  Company Number: NL-PFIZER INC-2021014203

PATIENT
  Age: 14 Month
  Sex: Female

DRUGS (3)
  1. ETOPOSIDE. [Suspect]
     Active Substance: ETOPOSIDE
     Indication: ACUTE MEGAKARYOCYTIC LEUKAEMIA
     Dosage: UNK, CYCLIC
  2. CYTARABINE. [Suspect]
     Active Substance: CYTARABINE
     Indication: ACUTE MEGAKARYOCYTIC LEUKAEMIA
     Dosage: UNK, CYCLIC
  3. DAUNORUBICIN [Suspect]
     Active Substance: DAUNORUBICIN
     Indication: ACUTE MEGAKARYOCYTIC LEUKAEMIA
     Dosage: UNK, CYCLIC

REACTIONS (1)
  - Hepatic failure [Unknown]
